FAERS Safety Report 7864037-2 (Version None)
Quarter: 2011Q4

REPORT INFORMATION
  Report Type: 
  Country: None (occurrence: None)
  Receive Date: 20111028
  Receipt Date: 20111017
  Transmission Date: 20120403
  Serious: Yes (Hospitalization)
  Sender: FDA-Public Use
  Company Number: JP-SP-2011-07996

PATIENT
  Sex: Male

DRUGS (6)
  1. IMMUCYST [Suspect]
     Indication: BLADDER CANCER
     Route: 043
     Dates: start: 20110802, end: 20110816
  2. LANSOPRAZOLE [Concomitant]
     Indication: GASTRIC ULCER
  3. ALLOPURINOL [Concomitant]
     Indication: HYPERURICAEMIA
  4. AMLODIPINE [Concomitant]
     Indication: HYPERTENSION
  5. PRAVASTATIN [Concomitant]
     Indication: HYPERGLYCAEMIA
  6. DONEPEZIL HCL [Concomitant]
     Indication: DEMENTIA

REACTIONS (1)
  - RENAL FAILURE ACUTE [None]
